FAERS Safety Report 10989337 (Version 2)
Quarter: 2015Q2

REPORT INFORMATION
  Report Type: Spontaneous
  Country: US (occurrence: US)
  Receive Date: 20150406
  Receipt Date: 20150508
  Transmission Date: 20150821
  Serious: No
  Sender: FDA-Public Use
  Company Number: US-PFIZER INC-2015114402

PATIENT
  Age: 59 Year
  Sex: Male

DRUGS (1)
  1. SUTENT [Suspect]
     Active Substance: SUNITINIB MALATE
     Indication: RENAL CANCER
     Dosage: 50 MG, DAILY
     Route: 048
     Dates: start: 20150112

REACTIONS (3)
  - Decreased appetite [Unknown]
  - Nausea [Unknown]
  - Dyspepsia [Unknown]

NARRATIVE: CASE EVENT DATE: 20150325
